FAERS Safety Report 5952286-X (Version None)
Quarter: 2008Q4

REPORT INFORMATION
  Report Type: 
  Country: None (occurrence: None)
  Receive Date: 20081113
  Receipt Date: 20081103
  Transmission Date: 20090506
  Serious: Yes (Other)
  Sender: FDA-Public Use
  Company Number: ES-AVENTIS-200820465GDDC

PATIENT
  Age: 57 Year
  Sex: Female

DRUGS (1)
  1. TAXOTERE [Suspect]
     Route: 042
     Dates: start: 20080528, end: 20080616

REACTIONS (4)
  - BACK PAIN [None]
  - CYANOSIS [None]
  - DYSPNOEA [None]
  - FEELING HOT [None]
